FAERS Safety Report 21298610 (Version 1)
Quarter: 2022Q3

REPORT INFORMATION
  Report Type: Spontaneous
  Country: US (occurrence: None)
  Receive Date: 20220903
  Receipt Date: 20220903
  Transmission Date: 20221027
  Serious: Yes (Hospitalization)
  Sender: FDA-Public Use
  Company Number: None

PATIENT
  Age: 57 Year
  Sex: Male
  Weight: 122.5 kg

DRUGS (2)
  1. CISPLATIN [Suspect]
     Active Substance: CISPLATIN
     Dates: end: 20220706
  2. ETOPOSIDE [Suspect]
     Active Substance: ETOPOSIDE
     Dates: end: 20220706

REACTIONS (5)
  - Dyspnoea [None]
  - Chest pain [None]
  - Electrocardiogram T wave abnormal [None]
  - Troponin I increased [None]
  - Pain [None]

NARRATIVE: CASE EVENT DATE: 20220707
